FAERS Safety Report 7441722-8 (Version None)
Quarter: 2011Q2

REPORT INFORMATION
  Report Type: 
  Country: None (occurrence: None)
  Receive Date: 20110428
  Receipt Date: 20110419
  Transmission Date: 20111010
  Serious: Yes (Hospitalization)
  Sender: FDA-Public Use
  Company Number: US-NOVOPROD-327066

PATIENT
  Age: 60 Year
  Sex: Female

DRUGS (2)
  1. METFORMIN [Concomitant]
     Indication: TYPE 2 DIABETES MELLITUS
  2. VICTOZA [Suspect]
     Indication: TYPE 2 DIABETES MELLITUS

REACTIONS (4)
  - NAUSEA [None]
  - VOMITING [None]
  - RENAL FAILURE [None]
  - DEHYDRATION [None]
